FAERS Safety Report 24308777 (Version 3)
Quarter: 2025Q2

REPORT INFORMATION
  Report Type: Spontaneous
  Country: IT (occurrence: IT)
  Receive Date: 20240911
  Receipt Date: 20250618
  Transmission Date: 20250716
  Serious: Yes (Hospitalization, Other)
  Sender: MYLAN
  Company Number: IT-BAXTER-2024BAX023710

PATIENT
  Age: 64 Year
  Sex: Female
  Weight: 41 kg

DRUGS (212)
  1. PREDNISONE [Suspect]
     Active Substance: PREDNISONE
     Indication: Product used for unknown indication
     Dates: start: 20231027, end: 20231229
  2. PREDNISONE [Suspect]
     Active Substance: PREDNISONE
     Route: 065
     Dates: start: 20231027, end: 20231229
  3. PREDNISONE [Suspect]
     Active Substance: PREDNISONE
     Route: 065
     Dates: start: 20231027, end: 20231229
  4. PREDNISONE [Suspect]
     Active Substance: PREDNISONE
     Dates: start: 20231027, end: 20231229
  5. ACETAMINOPHEN [Suspect]
     Active Substance: ACETAMINOPHEN
     Indication: Premedication
     Route: 065
     Dates: start: 20240211, end: 20240221
  6. ACETAMINOPHEN [Suspect]
     Active Substance: ACETAMINOPHEN
     Dates: start: 20240211, end: 20240221
  7. ACETAMINOPHEN [Suspect]
     Active Substance: ACETAMINOPHEN
     Dates: start: 20240211, end: 20240221
  8. ACETAMINOPHEN [Suspect]
     Active Substance: ACETAMINOPHEN
     Route: 065
     Dates: start: 20240211, end: 20240221
  9. ACETAMINOPHEN [Suspect]
     Active Substance: ACETAMINOPHEN
     Route: 048
     Dates: start: 20240305, end: 20240305
  10. ACETAMINOPHEN [Suspect]
     Active Substance: ACETAMINOPHEN
     Dates: start: 20240305, end: 20240305
  11. ACETAMINOPHEN [Suspect]
     Active Substance: ACETAMINOPHEN
     Dates: start: 20240305, end: 20240305
  12. ACETAMINOPHEN [Suspect]
     Active Substance: ACETAMINOPHEN
     Route: 048
     Dates: start: 20240305, end: 20240305
  13. ONDANSETRON [Suspect]
     Active Substance: ONDANSETRON
     Indication: Product used for unknown indication
     Dates: start: 20240203, end: 20240305
  14. ONDANSETRON [Suspect]
     Active Substance: ONDANSETRON
     Route: 065
     Dates: start: 20240203, end: 20240305
  15. ONDANSETRON [Suspect]
     Active Substance: ONDANSETRON
     Route: 065
     Dates: start: 20240203, end: 20240305
  16. ONDANSETRON [Suspect]
     Active Substance: ONDANSETRON
     Dates: start: 20240203, end: 20240305
  17. IFOSFAMIDE [Suspect]
     Active Substance: IFOSFAMIDE
     Indication: Diffuse large B-cell lymphoma stage IV
     Route: 042
     Dates: start: 20240204, end: 20240205
  18. IFOSFAMIDE [Suspect]
     Active Substance: IFOSFAMIDE
     Dates: start: 20240204, end: 20240205
  19. IFOSFAMIDE [Suspect]
     Active Substance: IFOSFAMIDE
     Dates: start: 20240204, end: 20240205
  20. IFOSFAMIDE [Suspect]
     Active Substance: IFOSFAMIDE
     Route: 042
     Dates: start: 20240204, end: 20240205
  21. IFOSFAMIDE [Suspect]
     Active Substance: IFOSFAMIDE
     Route: 042
     Dates: start: 20240306, end: 20240306
  22. IFOSFAMIDE [Suspect]
     Active Substance: IFOSFAMIDE
     Dates: start: 20240306, end: 20240306
  23. IFOSFAMIDE [Suspect]
     Active Substance: IFOSFAMIDE
     Dates: start: 20240306, end: 20240306
  24. IFOSFAMIDE [Suspect]
     Active Substance: IFOSFAMIDE
     Route: 042
     Dates: start: 20240306, end: 20240306
  25. RITUXIMAB [Suspect]
     Active Substance: RITUXIMAB
     Indication: Diffuse large B-cell lymphoma stage IV
     Route: 065
     Dates: start: 20231027, end: 20231229
  26. RITUXIMAB [Suspect]
     Active Substance: RITUXIMAB
     Dates: start: 20231027, end: 20231229
  27. RITUXIMAB [Suspect]
     Active Substance: RITUXIMAB
     Dates: start: 20231027, end: 20231229
  28. RITUXIMAB [Suspect]
     Active Substance: RITUXIMAB
     Route: 065
     Dates: start: 20231027, end: 20231229
  29. RITUXIMAB [Suspect]
     Active Substance: RITUXIMAB
     Route: 042
     Dates: start: 20240203, end: 20240305
  30. RITUXIMAB [Suspect]
     Active Substance: RITUXIMAB
     Dates: start: 20240203, end: 20240305
  31. RITUXIMAB [Suspect]
     Active Substance: RITUXIMAB
     Dates: start: 20240203, end: 20240305
  32. RITUXIMAB [Suspect]
     Active Substance: RITUXIMAB
     Route: 042
     Dates: start: 20240203, end: 20240305
  33. RITUXIMAB [Suspect]
     Active Substance: RITUXIMAB
     Dosage: 375 MILLIGRAM/SQ. METER, C2 ARM 10
     Route: 042
     Dates: start: 20240305, end: 20240305
  34. RITUXIMAB [Suspect]
     Active Substance: RITUXIMAB
     Dosage: 375 MILLIGRAM/SQ. METER, C2 ARM 10
     Route: 042
     Dates: start: 20240305, end: 20240305
  35. RITUXIMAB [Suspect]
     Active Substance: RITUXIMAB
     Dosage: 375 MILLIGRAM/SQ. METER, C2 ARM 10
     Dates: start: 20240305, end: 20240305
  36. RITUXIMAB [Suspect]
     Active Substance: RITUXIMAB
     Dosage: 375 MILLIGRAM/SQ. METER, C2 ARM 10
     Dates: start: 20240305, end: 20240305
  37. EPCORITAMAB [Suspect]
     Active Substance: EPCORITAMAB
     Indication: Diffuse large B-cell lymphoma stage IV
     Dates: start: 20240205, end: 20240205
  38. EPCORITAMAB [Suspect]
     Active Substance: EPCORITAMAB
     Dates: start: 20240205, end: 20240205
  39. EPCORITAMAB [Suspect]
     Active Substance: EPCORITAMAB
     Route: 058
     Dates: start: 20240205, end: 20240205
  40. EPCORITAMAB [Suspect]
     Active Substance: EPCORITAMAB
     Route: 058
     Dates: start: 20240205, end: 20240205
  41. EPCORITAMAB [Suspect]
     Active Substance: EPCORITAMAB
     Route: 058
     Dates: start: 20240213, end: 20240213
  42. EPCORITAMAB [Suspect]
     Active Substance: EPCORITAMAB
     Route: 058
     Dates: start: 20240213, end: 20240213
  43. EPCORITAMAB [Suspect]
     Active Substance: EPCORITAMAB
     Dates: start: 20240213, end: 20240213
  44. EPCORITAMAB [Suspect]
     Active Substance: EPCORITAMAB
     Dates: start: 20240213, end: 20240213
  45. EPCORITAMAB [Suspect]
     Active Substance: EPCORITAMAB
     Route: 058
     Dates: start: 20240220, end: 20240220
  46. EPCORITAMAB [Suspect]
     Active Substance: EPCORITAMAB
     Route: 058
     Dates: start: 20240220, end: 20240220
  47. EPCORITAMAB [Suspect]
     Active Substance: EPCORITAMAB
     Dates: start: 20240220, end: 20240220
  48. EPCORITAMAB [Suspect]
     Active Substance: EPCORITAMAB
     Dates: start: 20240220, end: 20240220
  49. EPCORITAMAB [Suspect]
     Active Substance: EPCORITAMAB
     Dates: start: 20240307, end: 20240307
  50. EPCORITAMAB [Suspect]
     Active Substance: EPCORITAMAB
     Dates: start: 20240307, end: 20240307
  51. EPCORITAMAB [Suspect]
     Active Substance: EPCORITAMAB
     Route: 058
     Dates: start: 20240307, end: 20240307
  52. EPCORITAMAB [Suspect]
     Active Substance: EPCORITAMAB
     Route: 058
     Dates: start: 20240307, end: 20240307
  53. EPCORITAMAB [Suspect]
     Active Substance: EPCORITAMAB
     Dates: start: 20240321, end: 20240510
  54. EPCORITAMAB [Suspect]
     Active Substance: EPCORITAMAB
     Dates: start: 20240321, end: 20240510
  55. EPCORITAMAB [Suspect]
     Active Substance: EPCORITAMAB
     Route: 058
     Dates: start: 20240321, end: 20240510
  56. EPCORITAMAB [Suspect]
     Active Substance: EPCORITAMAB
     Route: 058
     Dates: start: 20240321, end: 20240510
  57. EPCORITAMAB [Suspect]
     Active Substance: EPCORITAMAB
     Dates: start: 20240517, end: 20240920
  58. EPCORITAMAB [Suspect]
     Active Substance: EPCORITAMAB
     Dates: start: 20240517, end: 20240920
  59. EPCORITAMAB [Suspect]
     Active Substance: EPCORITAMAB
     Route: 058
     Dates: start: 20240517, end: 20240920
  60. EPCORITAMAB [Suspect]
     Active Substance: EPCORITAMAB
     Route: 058
     Dates: start: 20240517, end: 20240920
  61. VINCRISTINE [Suspect]
     Active Substance: VINCRISTINE
     Indication: Product used for unknown indication
     Dates: start: 20231027, end: 20231229
  62. VINCRISTINE [Suspect]
     Active Substance: VINCRISTINE
     Route: 065
     Dates: start: 20231027, end: 20231229
  63. VINCRISTINE [Suspect]
     Active Substance: VINCRISTINE
     Route: 065
     Dates: start: 20231027, end: 20231229
  64. VINCRISTINE [Suspect]
     Active Substance: VINCRISTINE
     Dates: start: 20231027, end: 20231229
  65. DOXORUBICIN [Suspect]
     Active Substance: DOXORUBICIN
     Indication: Product used for unknown indication
     Dates: start: 20231027, end: 20231029
  66. DOXORUBICIN [Suspect]
     Active Substance: DOXORUBICIN
     Route: 065
     Dates: start: 20231027, end: 20231029
  67. DOXORUBICIN [Suspect]
     Active Substance: DOXORUBICIN
     Route: 065
     Dates: start: 20231027, end: 20231029
  68. DOXORUBICIN [Suspect]
     Active Substance: DOXORUBICIN
     Dates: start: 20231027, end: 20231029
  69. CARBOPLATIN [Suspect]
     Active Substance: CARBOPLATIN
     Indication: Diffuse large B-cell lymphoma stage IV
     Route: 042
     Dates: start: 20240204, end: 20240204
  70. CARBOPLATIN [Suspect]
     Active Substance: CARBOPLATIN
     Dates: start: 20240204, end: 20240204
  71. CARBOPLATIN [Suspect]
     Active Substance: CARBOPLATIN
     Dates: start: 20240204, end: 20240204
  72. CARBOPLATIN [Suspect]
     Active Substance: CARBOPLATIN
     Route: 042
     Dates: start: 20240204, end: 20240204
  73. CARBOPLATIN [Suspect]
     Active Substance: CARBOPLATIN
     Route: 042
     Dates: start: 20240306, end: 20240306
  74. CARBOPLATIN [Suspect]
     Active Substance: CARBOPLATIN
     Dates: start: 20240306, end: 20240306
  75. CARBOPLATIN [Suspect]
     Active Substance: CARBOPLATIN
     Dates: start: 20240306, end: 20240306
  76. CARBOPLATIN [Suspect]
     Active Substance: CARBOPLATIN
     Route: 042
     Dates: start: 20240306, end: 20240306
  77. ETOPOSIDE [Suspect]
     Active Substance: ETOPOSIDE
     Indication: Diffuse large B-cell lymphoma stage IV
     Route: 042
     Dates: start: 20240203, end: 20240307
  78. ETOPOSIDE [Suspect]
     Active Substance: ETOPOSIDE
     Dates: start: 20240203, end: 20240307
  79. ETOPOSIDE [Suspect]
     Active Substance: ETOPOSIDE
     Dates: start: 20240203, end: 20240307
  80. ETOPOSIDE [Suspect]
     Active Substance: ETOPOSIDE
     Route: 042
     Dates: start: 20240203, end: 20240307
  81. ETOPOSIDE [Suspect]
     Active Substance: ETOPOSIDE
     Route: 042
     Dates: start: 20240305, end: 20240307
  82. ETOPOSIDE [Suspect]
     Active Substance: ETOPOSIDE
     Dates: start: 20240305, end: 20240307
  83. ETOPOSIDE [Suspect]
     Active Substance: ETOPOSIDE
     Dates: start: 20240305, end: 20240307
  84. ETOPOSIDE [Suspect]
     Active Substance: ETOPOSIDE
     Route: 042
     Dates: start: 20240305, end: 20240307
  85. CYCLOPHOSPHAMIDE [Suspect]
     Active Substance: CYCLOPHOSPHAMIDE
     Indication: Product used for unknown indication
     Dates: start: 20231027, end: 20231229
  86. CYCLOPHOSPHAMIDE [Suspect]
     Active Substance: CYCLOPHOSPHAMIDE
     Route: 065
     Dates: start: 20231027, end: 20231229
  87. CYCLOPHOSPHAMIDE [Suspect]
     Active Substance: CYCLOPHOSPHAMIDE
     Route: 065
     Dates: start: 20231027, end: 20231229
  88. CYCLOPHOSPHAMIDE [Suspect]
     Active Substance: CYCLOPHOSPHAMIDE
     Dates: start: 20231027, end: 20231229
  89. MESNA [Suspect]
     Active Substance: MESNA
     Indication: Product used for unknown indication
     Dates: start: 20240306, end: 20240306
  90. MESNA [Suspect]
     Active Substance: MESNA
     Route: 042
     Dates: start: 20240306, end: 20240306
  91. MESNA [Suspect]
     Active Substance: MESNA
     Route: 042
     Dates: start: 20240306, end: 20240306
  92. MESNA [Suspect]
     Active Substance: MESNA
     Dates: start: 20240306, end: 20240306
  93. POTASSIUM CHLORIDE [Concomitant]
     Active Substance: POTASSIUM CHLORIDE
     Dates: start: 20240216, end: 20240225
  94. POTASSIUM CHLORIDE [Concomitant]
     Active Substance: POTASSIUM CHLORIDE
     Route: 065
     Dates: start: 20240216, end: 20240225
  95. POTASSIUM CHLORIDE [Concomitant]
     Active Substance: POTASSIUM CHLORIDE
     Route: 065
     Dates: start: 20240216, end: 20240225
  96. POTASSIUM CHLORIDE [Concomitant]
     Active Substance: POTASSIUM CHLORIDE
     Dates: start: 20240216, end: 20240225
  97. ENOXAPARIN SODIUM [Concomitant]
     Active Substance: ENOXAPARIN SODIUM
  98. ENOXAPARIN SODIUM [Concomitant]
     Active Substance: ENOXAPARIN SODIUM
  99. ENOXAPARIN SODIUM [Concomitant]
     Active Substance: ENOXAPARIN SODIUM
     Route: 065
  100. ENOXAPARIN SODIUM [Concomitant]
     Active Substance: ENOXAPARIN SODIUM
     Route: 065
  101. ENOXAPARIN SODIUM [Concomitant]
     Active Substance: ENOXAPARIN SODIUM
  102. ENOXAPARIN SODIUM [Concomitant]
     Active Substance: ENOXAPARIN SODIUM
  103. ENOXAPARIN SODIUM [Concomitant]
     Active Substance: ENOXAPARIN SODIUM
     Route: 065
  104. ENOXAPARIN SODIUM [Concomitant]
     Active Substance: ENOXAPARIN SODIUM
     Route: 065
  105. MYCOSTATIN [Concomitant]
     Active Substance: NYSTATIN
  106. MYCOSTATIN [Concomitant]
     Active Substance: NYSTATIN
     Route: 065
  107. MYCOSTATIN [Concomitant]
     Active Substance: NYSTATIN
     Route: 065
  108. MYCOSTATIN [Concomitant]
     Active Substance: NYSTATIN
  109. PANTOPRAZOLE SODIUM [Concomitant]
     Active Substance: PANTOPRAZOLE SODIUM
  110. PANTOPRAZOLE SODIUM [Concomitant]
     Active Substance: PANTOPRAZOLE SODIUM
     Route: 065
  111. PANTOPRAZOLE SODIUM [Concomitant]
     Active Substance: PANTOPRAZOLE SODIUM
     Route: 065
  112. PANTOPRAZOLE SODIUM [Concomitant]
     Active Substance: PANTOPRAZOLE SODIUM
  113. METHYLPREDNISOLONE [Concomitant]
     Active Substance: METHYLPREDNISOLONE
     Indication: Prophylaxis
     Route: 042
     Dates: start: 20240213, end: 20240213
  114. METHYLPREDNISOLONE [Concomitant]
     Active Substance: METHYLPREDNISOLONE
     Dates: start: 20240213, end: 20240213
  115. METHYLPREDNISOLONE [Concomitant]
     Active Substance: METHYLPREDNISOLONE
     Dates: start: 20240213, end: 20240213
  116. METHYLPREDNISOLONE [Concomitant]
     Active Substance: METHYLPREDNISOLONE
     Route: 042
     Dates: start: 20240213, end: 20240213
  117. METHYLPREDNISOLONE [Concomitant]
     Active Substance: METHYLPREDNISOLONE
     Route: 042
     Dates: start: 20240220, end: 20240220
  118. METHYLPREDNISOLONE [Concomitant]
     Active Substance: METHYLPREDNISOLONE
     Route: 042
     Dates: start: 20240220, end: 20240220
  119. METHYLPREDNISOLONE [Concomitant]
     Active Substance: METHYLPREDNISOLONE
     Dates: start: 20240220, end: 20240220
  120. METHYLPREDNISOLONE [Concomitant]
     Active Substance: METHYLPREDNISOLONE
     Dates: start: 20240220, end: 20240220
  121. METHYLPREDNISOLONE [Concomitant]
     Active Substance: METHYLPREDNISOLONE
     Route: 042
     Dates: start: 20240305, end: 20240305
  122. METHYLPREDNISOLONE [Concomitant]
     Active Substance: METHYLPREDNISOLONE
     Route: 042
     Dates: start: 20240305, end: 20240305
  123. METHYLPREDNISOLONE [Concomitant]
     Active Substance: METHYLPREDNISOLONE
     Dates: start: 20240305, end: 20240305
  124. METHYLPREDNISOLONE [Concomitant]
     Active Substance: METHYLPREDNISOLONE
     Dates: start: 20240305, end: 20240305
  125. METHYLPREDNISOLONE [Concomitant]
     Active Substance: METHYLPREDNISOLONE
     Route: 042
     Dates: start: 20240307, end: 20240307
  126. METHYLPREDNISOLONE [Concomitant]
     Active Substance: METHYLPREDNISOLONE
     Dates: start: 20240307, end: 20240307
  127. METHYLPREDNISOLONE [Concomitant]
     Active Substance: METHYLPREDNISOLONE
     Dates: start: 20240307, end: 20240307
  128. METHYLPREDNISOLONE [Concomitant]
     Active Substance: METHYLPREDNISOLONE
     Route: 042
     Dates: start: 20240307, end: 20240307
  129. LEVOFLOXACIN [Concomitant]
     Active Substance: LEVOFLOXACIN
  130. LEVOFLOXACIN [Concomitant]
     Active Substance: LEVOFLOXACIN
     Route: 065
  131. LEVOFLOXACIN [Concomitant]
     Active Substance: LEVOFLOXACIN
     Route: 065
  132. LEVOFLOXACIN [Concomitant]
     Active Substance: LEVOFLOXACIN
  133. CEFTRIAXONE [Concomitant]
     Active Substance: CEFTRIAXONE
     Dates: start: 20240224, end: 20240324
  134. CEFTRIAXONE [Concomitant]
     Active Substance: CEFTRIAXONE
     Route: 065
     Dates: start: 20240224, end: 20240324
  135. CEFTRIAXONE [Concomitant]
     Active Substance: CEFTRIAXONE
     Route: 065
     Dates: start: 20240224, end: 20240324
  136. CEFTRIAXONE [Concomitant]
     Active Substance: CEFTRIAXONE
     Dates: start: 20240224, end: 20240324
  137. ALLOPURINOL [Concomitant]
     Active Substance: ALLOPURINOL
  138. ALLOPURINOL [Concomitant]
     Active Substance: ALLOPURINOL
     Route: 065
  139. ALLOPURINOL [Concomitant]
     Active Substance: ALLOPURINOL
     Route: 065
  140. ALLOPURINOL [Concomitant]
     Active Substance: ALLOPURINOL
  141. FILGRASTIM [Concomitant]
     Active Substance: FILGRASTIM
     Dates: start: 20240211, end: 20240602
  142. FILGRASTIM [Concomitant]
     Active Substance: FILGRASTIM
     Route: 065
     Dates: start: 20240211, end: 20240602
  143. FILGRASTIM [Concomitant]
     Active Substance: FILGRASTIM
     Route: 065
     Dates: start: 20240211, end: 20240602
  144. FILGRASTIM [Concomitant]
     Active Substance: FILGRASTIM
     Dates: start: 20240211, end: 20240602
  145. ALLOPURINOL [Concomitant]
     Active Substance: ALLOPURINOL
     Dates: start: 20231018, end: 20240307
  146. ALLOPURINOL [Concomitant]
     Active Substance: ALLOPURINOL
     Route: 065
     Dates: start: 20231018, end: 20240307
  147. ALLOPURINOL [Concomitant]
     Active Substance: ALLOPURINOL
     Route: 065
     Dates: start: 20231018, end: 20240307
  148. ALLOPURINOL [Concomitant]
     Active Substance: ALLOPURINOL
     Dates: start: 20231018, end: 20240307
  149. PREDNISONE [Concomitant]
     Active Substance: PREDNISONE
     Indication: Prophylaxis
     Route: 048
     Dates: start: 20240214, end: 20240216
  150. PREDNISONE [Concomitant]
     Active Substance: PREDNISONE
     Dates: start: 20240214, end: 20240216
  151. PREDNISONE [Concomitant]
     Active Substance: PREDNISONE
     Dates: start: 20240214, end: 20240216
  152. PREDNISONE [Concomitant]
     Active Substance: PREDNISONE
     Route: 048
     Dates: start: 20240214, end: 20240216
  153. PREDNISONE [Concomitant]
     Active Substance: PREDNISONE
     Dates: start: 20240221, end: 20240223
  154. PREDNISONE [Concomitant]
     Active Substance: PREDNISONE
     Dates: start: 20240221, end: 20240223
  155. PREDNISONE [Concomitant]
     Active Substance: PREDNISONE
     Route: 048
     Dates: start: 20240221, end: 20240223
  156. PREDNISONE [Concomitant]
     Active Substance: PREDNISONE
     Route: 048
     Dates: start: 20240221, end: 20240223
  157. PREDNISONE [Concomitant]
     Active Substance: PREDNISONE
     Route: 048
     Dates: start: 20240308, end: 20240310
  158. PREDNISONE [Concomitant]
     Active Substance: PREDNISONE
     Dates: start: 20240308, end: 20240310
  159. PREDNISONE [Concomitant]
     Active Substance: PREDNISONE
     Dates: start: 20240308, end: 20240310
  160. PREDNISONE [Concomitant]
     Active Substance: PREDNISONE
     Route: 048
     Dates: start: 20240308, end: 20240310
  161. METOCLOPRAMIDE [Concomitant]
     Active Substance: METOCLOPRAMIDE
     Dates: start: 20240210, end: 20240218
  162. METOCLOPRAMIDE [Concomitant]
     Active Substance: METOCLOPRAMIDE
     Route: 065
     Dates: start: 20240210, end: 20240218
  163. METOCLOPRAMIDE [Concomitant]
     Active Substance: METOCLOPRAMIDE
     Route: 065
     Dates: start: 20240210, end: 20240218
  164. METOCLOPRAMIDE [Concomitant]
     Active Substance: METOCLOPRAMIDE
     Dates: start: 20240210, end: 20240218
  165. FLUCONAZOLE [Concomitant]
     Active Substance: FLUCONAZOLE
     Dates: start: 20240301, end: 20240307
  166. FLUCONAZOLE [Concomitant]
     Active Substance: FLUCONAZOLE
     Route: 065
     Dates: start: 20240301, end: 20240307
  167. FLUCONAZOLE [Concomitant]
     Active Substance: FLUCONAZOLE
     Route: 065
     Dates: start: 20240301, end: 20240307
  168. FLUCONAZOLE [Concomitant]
     Active Substance: FLUCONAZOLE
     Dates: start: 20240301, end: 20240307
  169. LOPERAMIDE [Concomitant]
     Active Substance: LOPERAMIDE
     Dates: start: 20240211, end: 20240218
  170. LOPERAMIDE [Concomitant]
     Active Substance: LOPERAMIDE
     Route: 065
     Dates: start: 20240211, end: 20240218
  171. LOPERAMIDE [Concomitant]
     Active Substance: LOPERAMIDE
     Route: 065
     Dates: start: 20240211, end: 20240218
  172. LOPERAMIDE [Concomitant]
     Active Substance: LOPERAMIDE
     Dates: start: 20240211, end: 20240218
  173. ACYCLOVIR [Concomitant]
     Active Substance: ACYCLOVIR
     Dates: start: 20240301, end: 20240308
  174. ACYCLOVIR [Concomitant]
     Active Substance: ACYCLOVIR
     Route: 065
     Dates: start: 20240301, end: 20240308
  175. ACYCLOVIR [Concomitant]
     Active Substance: ACYCLOVIR
     Route: 065
     Dates: start: 20240301, end: 20240308
  176. ACYCLOVIR [Concomitant]
     Active Substance: ACYCLOVIR
     Dates: start: 20240301, end: 20240308
  177. Tationil [Concomitant]
     Dates: start: 20240209, end: 20240214
  178. Tationil [Concomitant]
     Route: 065
     Dates: start: 20240209, end: 20240214
  179. Tationil [Concomitant]
     Route: 065
     Dates: start: 20240209, end: 20240214
  180. Tationil [Concomitant]
     Dates: start: 20240209, end: 20240214
  181. CHLORPHENIRAMINE MALEATE [Concomitant]
     Active Substance: CHLORPHENIRAMINE MALEATE
     Indication: Premedication
     Dates: start: 20240305, end: 20240305
  182. CHLORPHENIRAMINE MALEATE [Concomitant]
     Active Substance: CHLORPHENIRAMINE MALEATE
     Route: 042
     Dates: start: 20240305, end: 20240305
  183. CHLORPHENIRAMINE MALEATE [Concomitant]
     Active Substance: CHLORPHENIRAMINE MALEATE
     Route: 042
     Dates: start: 20240305, end: 20240305
  184. CHLORPHENIRAMINE MALEATE [Concomitant]
     Active Substance: CHLORPHENIRAMINE MALEATE
     Dates: start: 20240305, end: 20240305
  185. URSODIOL [Concomitant]
     Active Substance: URSODIOL
     Dates: start: 20240209, end: 20240213
  186. URSODIOL [Concomitant]
     Active Substance: URSODIOL
     Route: 065
     Dates: start: 20240209, end: 20240213
  187. URSODIOL [Concomitant]
     Active Substance: URSODIOL
     Route: 065
     Dates: start: 20240209, end: 20240213
  188. URSODIOL [Concomitant]
     Active Substance: URSODIOL
     Dates: start: 20240209, end: 20240213
  189. SULFAMETHOXAZOLE AND TRIMETHOPRIM [Concomitant]
     Active Substance: SULFAMETHOXAZOLE\TRIMETHOPRIM
  190. SULFAMETHOXAZOLE AND TRIMETHOPRIM [Concomitant]
     Active Substance: SULFAMETHOXAZOLE\TRIMETHOPRIM
     Route: 065
  191. SULFAMETHOXAZOLE AND TRIMETHOPRIM [Concomitant]
     Active Substance: SULFAMETHOXAZOLE\TRIMETHOPRIM
     Route: 065
  192. SULFAMETHOXAZOLE AND TRIMETHOPRIM [Concomitant]
     Active Substance: SULFAMETHOXAZOLE\TRIMETHOPRIM
  193. ASPIRIN [Concomitant]
     Active Substance: ASPIRIN
  194. ASPIRIN [Concomitant]
     Active Substance: ASPIRIN
     Route: 065
  195. ASPIRIN [Concomitant]
     Active Substance: ASPIRIN
     Route: 065
  196. ASPIRIN [Concomitant]
     Active Substance: ASPIRIN
  197. SODIUM POLYSTYRENE SULFONATE [Concomitant]
     Active Substance: SODIUM POLYSTYRENE SULFONATE
  198. SODIUM POLYSTYRENE SULFONATE [Concomitant]
     Active Substance: SODIUM POLYSTYRENE SULFONATE
     Route: 065
  199. SODIUM POLYSTYRENE SULFONATE [Concomitant]
     Active Substance: SODIUM POLYSTYRENE SULFONATE
     Route: 065
  200. SODIUM POLYSTYRENE SULFONATE [Concomitant]
     Active Substance: SODIUM POLYSTYRENE SULFONATE
  201. AZITHROMYCIN [Concomitant]
     Active Substance: AZITHROMYCIN
     Dates: start: 20241005, end: 20250216
  202. AZITHROMYCIN [Concomitant]
     Active Substance: AZITHROMYCIN
     Route: 065
     Dates: start: 20241005, end: 20250216
  203. AZITHROMYCIN [Concomitant]
     Active Substance: AZITHROMYCIN
     Route: 065
     Dates: start: 20241005, end: 20250216
  204. AZITHROMYCIN [Concomitant]
     Active Substance: AZITHROMYCIN
     Dates: start: 20241005, end: 20250216
  205. AMOXICILLIN [Concomitant]
     Active Substance: AMOXICILLIN
     Dates: start: 20250205, end: 20250211
  206. AMOXICILLIN [Concomitant]
     Active Substance: AMOXICILLIN
     Route: 065
     Dates: start: 20250205, end: 20250211
  207. AMOXICILLIN [Concomitant]
     Active Substance: AMOXICILLIN
     Route: 065
     Dates: start: 20250205, end: 20250211
  208. AMOXICILLIN [Concomitant]
     Active Substance: AMOXICILLIN
     Dates: start: 20250205, end: 20250211
  209. CLAVULANIC ACID [Concomitant]
     Active Substance: CLAVULANIC ACID
     Dates: start: 20250205, end: 20250211
  210. CLAVULANIC ACID [Concomitant]
     Active Substance: CLAVULANIC ACID
     Route: 065
     Dates: start: 20250205, end: 20250211
  211. CLAVULANIC ACID [Concomitant]
     Active Substance: CLAVULANIC ACID
     Route: 065
     Dates: start: 20250205, end: 20250211
  212. CLAVULANIC ACID [Concomitant]
     Active Substance: CLAVULANIC ACID
     Dates: start: 20250205, end: 20250211

REACTIONS (4)
  - Myocardial infarction [Recovered/Resolved]
  - Cold sweat [Unknown]
  - Chest discomfort [Unknown]
  - Dizziness [Unknown]

NARRATIVE: CASE EVENT DATE: 20240308
